FAERS Safety Report 4604989-7 (Version None)
Quarter: 2005Q1

REPORT INFORMATION
  Report Type: 
  Country: None (occurrence: None)
  Receive Date: 20050310
  Receipt Date: 20050310
  Transmission Date: 20050727
  Serious: Yes (Hospitalization)
  Sender: FDA-Public Use
  Company Number: None

PATIENT
  Age: 67 Year
  Sex: Male
  Weight: 73.1 kg

DRUGS (29)
  1. DOXETAXEL [Suspect]
     Indication: NON-SMALL CELL LUNG CANCER RECURRENT
     Dosage: 30 MG/M2 , Q WX 3 , IV
     Route: 042
     Dates: start: 20050210
  2. DOXETAXEL [Suspect]
     Indication: NON-SMALL CELL LUNG CANCER RECURRENT
     Dosage: 30 MG/M2 , Q WX 3 , IV
     Route: 042
     Dates: start: 20050217
  3. DOXETAXEL [Suspect]
     Indication: NON-SMALL CELL LUNG CANCER RECURRENT
     Dosage: 30 MG/M2 , Q WX 3 , IV
     Route: 042
     Dates: start: 20050224
  4. GLEEVEC [Suspect]
     Indication: NON-SMALL CELL LUNG CANCER RECURRENT
     Dosage: 600 MG DAILY PO
     Route: 048
     Dates: start: 20050210, end: 20050304
  5. ASCORBIC ACID [Concomitant]
  6. ASPIRIN [Concomitant]
  7. ATENOLOL [Concomitant]
  8. AZITHROMYCIN [Concomitant]
  9. BACLOFEN [Concomitant]
  10. CALCIUM 500 MG/VITAMIN D [Concomitant]
  11. CLOPIOGREL BISULFATE [Concomitant]
  12. CODEINE SO4 [Concomitant]
  13. CTM 8/PSEUDOEPHEDRINE SA [Concomitant]
  14. DEXAMETHASONE [Concomitant]
  15. DIPHENHYDRAMINE HCL [Concomitant]
  16. DOCETAXEL [Concomitant]
  17. HCTZ 50/TRIAMTERENE [Concomitant]
  18. IBUPROFEN [Concomitant]
  19. LACTULOSE [Concomitant]
  20. LOPRAMIDE HCL [Concomitant]
  21. LORAZEPAM [Concomitant]
  22. MEGESTROL ACETATE [Concomitant]
  23. NUTRITION SUPL ENSURE PLUS/VANILLA LIQ [Concomitant]
  24. PENTOXIFYLLINE [Concomitant]
  25. POTASSIUM CHLORIDE [Concomitant]
  26. PROCHLORPERAZINE MALEATE [Concomitant]
  27. SIMVASTATIN [Concomitant]
  28. STUDY DRUG-CK IMATINIB [Concomitant]
  29. VITAMIN E [Concomitant]

REACTIONS (3)
  - ASTHENIA [None]
  - HYPOKALAEMIA [None]
  - HYPOVOLAEMIA [None]
